FAERS Safety Report 21886575 (Version 1)
Quarter: 2023Q1

REPORT INFORMATION
  Report Type: Spontaneous
  Country: US (occurrence: None)
  Receive Date: 20230119
  Receipt Date: 20230119
  Transmission Date: 20230418
  Serious: Yes (Other)
  Sender: FDA-Public Use
  Company Number: None

PATIENT
  Age: 33 Year
  Sex: Female
  Weight: 66.6 kg

DRUGS (3)
  1. HYDROXYZINE DIHYDROCHLORIDE [Suspect]
     Active Substance: HYDROXYZINE DIHYDROCHLORIDE
     Indication: Pruritus
     Dosage: OTHER QUANTITY : 60 TABLET(S);?FREQUENCY : AS NEEDED;?
     Route: 048
     Dates: start: 20230108, end: 20230119
  2. ADDERALL [Concomitant]
     Active Substance: AMPHETAMINE ASPARTATE\AMPHETAMINE SULFATE\DEXTROAMPHETAMINE SACCHARATE\DEXTROAMPHETAMINE SULFATE
  3. VITAMINS [Concomitant]
     Active Substance: VITAMINS

REACTIONS (2)
  - Dermatitis allergic [None]
  - Rash pruritic [None]

NARRATIVE: CASE EVENT DATE: 20230116
